FAERS Safety Report 6519203-5 (Version None)
Quarter: 2009Q4

REPORT INFORMATION
  Report Type: 
  Country: None (occurrence: None)
  Receive Date: 20091228
  Receipt Date: 20091007
  Transmission Date: 20100525
  Serious: Yes (Death)
  Sender: FDA-Public Use
  Company Number: JP-SANOFI-AVENTIS-200912783JP

PATIENT
  Age: 79 Year
  Sex: Male

DRUGS (1)
  1. DOCETAXEL [Suspect]
     Indication: NON-SMALL CELL LUNG CANCER RECURRENT
     Route: 041

REACTIONS (1)
  - INTERSTITIAL LUNG DISEASE [None]
